FAERS Safety Report 6501671-6 (Version None)
Quarter: 2009Q4

REPORT INFORMATION
  Report Type: 
  Country: None (occurrence: None)
  Receive Date: 20091214
  Receipt Date: 20091201
  Transmission Date: 20100525
  Serious: Yes (Death, Life-Threatening, Hospitalization)
  Sender: FDA-Public Use
  Company Number: 008

PATIENT
  Age: 43 Year
  Sex: Female
  Weight: 175 kg

DRUGS (8)
  1. FAZACLO ODT [Suspect]
     Indication: BIPOLAR DISORDER
     Dosage: 150 MG PO DAILY
     Route: 048
     Dates: start: 20041101, end: 20050420
  2. TYLENOL W/CODEINE #3 [Concomitant]
  3. ALUTEROL NEBULIZER [Concomitant]
  4. PROZAC [Concomitant]
  5. DEPAKOTE [Concomitant]
  6. DEXEDRINE [Concomitant]
  7. LEVOTHYROXINE SODIUM [Concomitant]
  8. SENNA [Concomitant]

REACTIONS (5)
  - COLITIS [None]
  - LABILE BLOOD PRESSURE [None]
  - OXYGEN SATURATION DECREASED [None]
  - RESPIRATORY DISTRESS [None]
  - SEDATION [None]
